FAERS Safety Report 21877740 (Version 5)
Quarter: 2023Q1

REPORT INFORMATION
  Report Type: Report from Study
  Country: US (occurrence: US)
  Receive Date: 20230118
  Receipt Date: 20230220
  Transmission Date: 20230417
  Serious: No
  Sender: FDA-Public Use
  Company Number: US-002147023-NVSC2023US011083

PATIENT
  Age: 22 Year
  Sex: Female

DRUGS (3)
  1. KESIMPTA [Suspect]
     Active Substance: OFATUMUMAB
     Indication: Product used for unknown indication
     Dosage: UNK, QW
     Route: 065
     Dates: start: 20230109
  2. KESIMPTA [Suspect]
     Active Substance: OFATUMUMAB
     Dosage: UNK, QMO
     Route: 065
  3. KESIMPTA [Suspect]
     Active Substance: OFATUMUMAB
     Dosage: UNK, QMO
     Route: 065
     Dates: start: 20230206

REACTIONS (3)
  - Burning sensation [Recovered/Resolved]
  - Paraesthesia [Recovered/Resolved]
  - Injection site bruising [Unknown]

NARRATIVE: CASE EVENT DATE: 20230109
